FAERS Safety Report 16324986 (Version 2)
Quarter: 2019Q2

REPORT INFORMATION
  Report Type: Spontaneous
  Country: US (occurrence: US)
  Receive Date: 20190517
  Receipt Date: 20190529
  Transmission Date: 20190711
  Serious: No
  Sender: FDA-Public Use
  Company Number: US-AMGEN-USASP2019075715

PATIENT
  Age: 48 Year
  Sex: Female
  Weight: 87.08 kg

DRUGS (1)
  1. REPATHA [Suspect]
     Active Substance: EVOLOCUMAB
     Indication: PRODUCT USED FOR UNKNOWN INDICATION
     Dosage: UNK UNK, Q2WK
     Route: 065
     Dates: start: 20190425

REACTIONS (3)
  - Swelling [Unknown]
  - Rash pruritic [Unknown]
  - Rash erythematous [Unknown]

NARRATIVE: CASE EVENT DATE: 2019
